FAERS Safety Report 15231294 (Version 1)
Quarter: 2018Q3

REPORT INFORMATION
  Report Type: Spontaneous
  Country: US (occurrence: US)
  Receive Date: 20180802
  Receipt Date: 20180802
  Transmission Date: 20181010
  Serious: No
  Sender: FDA-Public Use
  Company Number: US-ASTRAZENECA-2018SE97041

PATIENT
  Age: 56 Year
  Sex: Female

DRUGS (5)
  1. FASENRA [Suspect]
     Active Substance: BENRALIZUMAB
     Dosage: 30MG EVERY 4 WEEKS FOR THE FIRST 3 DOSES, FOLLOWED BY ONCE EVERY 8 WEEKS
     Route: 058
     Dates: start: 20180629
  2. VALTREX [Concomitant]
     Active Substance: VALACYCLOVIR HYDROCHLORIDE
  3. CLARITIN [Concomitant]
     Active Substance: LORATADINE
  4. FASENRA [Suspect]
     Active Substance: BENRALIZUMAB
     Dosage: 30MG EVERY 4 WEEKS FOR THE FIRST 3 DOSES, FOLLOWED BY ONCE EVERY 8 WEEKS
     Route: 058
     Dates: start: 20180628
  5. SYMBICORT [Suspect]
     Active Substance: BUDESONIDE\FORMOTEROL FUMARATE DIHYDRATE
     Dosage: UNKNOWN UNKNOWN
     Route: 055

REACTIONS (1)
  - Alopecia [Unknown]

NARRATIVE: CASE EVENT DATE: 20180629
